FAERS Safety Report 7905993-3 (Version None)
Quarter: 2011Q4

REPORT INFORMATION
  Report Type: 
  Country: None (occurrence: None)
  Receive Date: 20111109
  Receipt Date: 20111109
  Transmission Date: 20120403
  Serious: Yes (Other)
  Sender: FDA-Public Use
  Company Number: None

PATIENT
  Age: 69 Year
  Sex: Female
  Weight: 61.2356 kg

DRUGS (1)
  1. CRESTOR [Suspect]
     Indication: BLOOD CHOLESTEROL
     Dosage: 5 MG ONCE DAILY ORAL 047
     Route: 048
     Dates: start: 20110701, end: 20110830

REACTIONS (2)
  - MUSCULAR WEAKNESS [None]
  - MYALGIA [None]
